FAERS Safety Report 9042204 (Version 1)
Quarter: 2013Q1

REPORT INFORMATION
  Report Type: Report from Study
  Country: US (occurrence: US)
  Receive Date: 20130129
  Receipt Date: 20130129
  Transmission Date: 20140127
  Serious: No
  Sender: FDA-Public Use
  Company Number: US-ABBOTT-12P-163-0908259-00

PATIENT
  Age: 58 None
  Sex: 0
  Weight: 114.41 kg

DRUGS (3)
  1. HUMIRA 40 MG/0.8 ML PEN [Suspect]
     Indication: RHEUMATOID ARTHRITIS
     Dates: end: 201201
  2. UNNAMED MEDICATION [Concomitant]
     Indication: CARDIOVASCULAR DISORDER
  3. UNNAMED MEDICATION [Concomitant]
     Indication: HYPERTENSION

REACTIONS (6)
  - Pain [Not Recovered/Not Resolved]
  - Swelling [Not Recovered/Not Resolved]
  - Nasopharyngitis [Recovering/Resolving]
  - Sneezing [Recovering/Resolving]
  - Cough [Recovering/Resolving]
  - Sputum purulent [Recovering/Resolving]
